FAERS Safety Report 13572195 (Version 1)
Quarter: 2017Q2

REPORT INFORMATION
  Report Type: Spontaneous
  Country: US (occurrence: US)
  Receive Date: 20170523
  Receipt Date: 20170523
  Transmission Date: 20170830
  Serious: Yes (Hospitalization)
  Sender: FDA-Public Use
  Company Number: US-LANNETT COMPANY, INC.-US-2017LAN000776

PATIENT

DRUGS (1)
  1. HYDROMORPHONE HYDROCHLORIDE (8MG) [Suspect]
     Active Substance: HYDROMORPHONE HYDROCHLORIDE
     Indication: PAIN
     Dosage: 2 MG, SINGLE
     Route: 042

REACTIONS (1)
  - Angioedema [Recovered/Resolved]
